FAERS Safety Report 11787409 (Version 1)
Quarter: 2015Q4

REPORT INFORMATION
  Report Type: Spontaneous
  Country: JP (occurrence: JP)
  Receive Date: 20151130
  Receipt Date: 20151130
  Transmission Date: 20160305
  Serious: Yes (Death, Other)
  Sender: FDA-Public Use
  Company Number: PHHY2015JP132342

PATIENT
  Sex: Male

DRUGS (1)
  1. REVOLADE [Suspect]
     Active Substance: ELTROMBOPAG
     Indication: MYELODYSPLASTIC SYNDROME
     Dosage: 12.5 MG, QD
     Route: 048
     Dates: start: 2014, end: 201501

REACTIONS (6)
  - Thrombocytopenia [Unknown]
  - Product use issue [Recovered/Resolved]
  - Acute myeloid leukaemia [Unknown]
  - Anaemia [Unknown]
  - Myelodysplastic syndrome [Fatal]
  - Granulocytopenia [Unknown]

NARRATIVE: CASE EVENT DATE: 201508
